FAERS Safety Report 19828984 (Version 1)
Quarter: 2021Q3

REPORT INFORMATION
  Report Type: Spontaneous
  Country: CA (occurrence: CA)
  Receive Date: 20210914
  Receipt Date: 20210914
  Transmission Date: 20211014
  Serious: Yes (Other)
  Sender: FDA-Public Use
  Company Number: CA-PURDUE-USA-2020-0283713

PATIENT
  Sex: Male

DRUGS (4)
  1. CODEINE [Suspect]
     Active Substance: CODEINE
     Indication: PRODUCT USED FOR UNKNOWN INDICATION
     Dosage: 30 MG, UNK
     Route: 065
  2. DILAUDID [Suspect]
     Active Substance: HYDROMORPHONE HYDROCHLORIDE
     Indication: PAIN
     Dosage: 4 MG, UNKNOWN (MAX 92 MG PER DAY AND EVERY 4 TO 5 HOURS)
     Route: 048
  3. HYDROMORPHONE TABLET (RHODES) [Suspect]
     Active Substance: HYDROMORPHONE
     Indication: PAIN
     Dosage: 6 MG, BID
     Route: 048
  4. MORPHINE SULFATE (SIMILAR TO NDA 19?516) [Suspect]
     Active Substance: MORPHINE SULFATE
     Indication: PAIN
     Dosage: UNKNOWN
     Route: 065

REACTIONS (10)
  - Loss of consciousness [Unknown]
  - Drug dependence [Unknown]
  - Impaired work ability [Unknown]
  - Drug withdrawal syndrome [Unknown]
  - Cardiac disorder [Unknown]
  - Road traffic accident [Unknown]
  - Bedridden [Unknown]
  - Drug tolerance [Unknown]
  - Suicide attempt [Unknown]
  - Drug ineffective [Unknown]

NARRATIVE: CASE EVENT DATE: 2009
